FAERS Safety Report 14586418 (Version 17)
Quarter: 2019Q3

REPORT INFORMATION
  Report Type: Spontaneous
  Country: DE (occurrence: DE)
  Receive Date: 20180301
  Receipt Date: 20190715
  Transmission Date: 20191004
  Serious: Yes (Life-Threatening, Hospitalization, Other)
  Sender: FDA-Public Use
  Company Number: DE-PFIZER INC-2016167175

PATIENT
  Age: 74 Year
  Sex: Male
  Weight: 85 kg

DRUGS (11)
  1. ASPIRIN. [Interacting]
     Active Substance: ASPIRIN
     Dosage: 1 DF, 1X/DAY, 1DF=DRUG STRUCTURE DOSAGE NUMBER OF 1 AND DRUG INTERVAL DOSAGE UNIT NUMBER OF 1 DAY
     Route: 048
  2. BIOTIN [Concomitant]
     Active Substance: BIOTIN
     Dosage: 5 MG, DAILY
     Route: 048
  3. ELIQUIS [Interacting]
     Active Substance: APIXABAN
     Indication: ATRIAL FIBRILLATION
     Dosage: 5 MG, 2X/DAY
     Route: 048
  4. ACETYLSALICYLIC ACID [Interacting]
     Active Substance: ASPIRIN
     Dosage: UNK
     Route: 048
  5. CORDARONE [Suspect]
     Active Substance: AMIODARONE HYDROCHLORIDE
     Indication: ATRIAL FIBRILLATION
     Dosage: UNK
     Route: 048
  6. AMLODIPINE [Concomitant]
     Active Substance: AMLODIPINE BESYLATE
     Dosage: 10 MG, QD
     Route: 048
  7. URAPIDIL [Concomitant]
     Active Substance: URAPIDIL
     Dosage: 60 MG, QD
     Route: 065
  8. AMIODARONE HYDROCHLORIDE. [Concomitant]
     Active Substance: AMIODARONE HYDROCHLORIDE
     Dosage: UNK
     Route: 065
  9. ACETYLSALICYLIC ACID [Interacting]
     Active Substance: ASPIRIN
     Dosage: 1 DF, 1X/DAY
     Route: 048
  10. ELIQUIS [Interacting]
     Active Substance: APIXABAN
     Indication: CEREBROVASCULAR ACCIDENT PROPHYLAXIS
  11. BISOPROLOL [Concomitant]
     Active Substance: BISOPROLOL
     Dosage: 2.5 MG, QD
     Route: 048

REACTIONS (7)
  - Intraventricular haemorrhage [Not Recovered/Not Resolved]
  - Overdose [Unknown]
  - Coma [Not Recovered/Not Resolved]
  - Cerebral haemorrhage [Not Recovered/Not Resolved]
  - Hemiparesis [Not Recovered/Not Resolved]
  - Road traffic accident [Unknown]
  - Labelled drug-drug interaction medication error [Unknown]

NARRATIVE: CASE EVENT DATE: 20160122
